FAERS Safety Report 5719653-0 (Version None)
Quarter: 2008Q2

REPORT INFORMATION
  Report Type: 
  Country: None (occurrence: None)
  Receive Date: 20080428
  Receipt Date: 20080424
  Transmission Date: 20081010
  Serious: Yes (Hospitalization)
  Sender: FDA-Public Use
  Company Number: US-BRISTOL-MYERS SQUIBB COMPANY-13326160

PATIENT
  Age: 61 Year
  Sex: Female

DRUGS (1)
  1. DASATINIB [Suspect]
     Indication: ACUTE LYMPHOCYTIC LEUKAEMIA
     Dosage: INTERRUPTED FROM 24MAR06-07APR06;REDUCED TO 80MG/DAY FROM 08APR08
     Route: 048
     Dates: start: 20060215, end: 20060323

REACTIONS (2)
  - INFECTION [None]
  - PLEURAL EFFUSION [None]
